FAERS Safety Report 24726988 (Version 1)
Quarter: 2024Q4

REPORT INFORMATION
  Report Type: Spontaneous
  Country: US (occurrence: US)
  Receive Date: 20241212
  Receipt Date: 20241212
  Transmission Date: 20250115
  Serious: No
  Sender: TEVA
  Company Number: US-TEVA-VS-3269783

PATIENT
  Age: 26 Year
  Sex: Male
  Weight: 77.111 kg

DRUGS (1)
  1. MODAFINIL [Suspect]
     Active Substance: MODAFINIL
     Indication: Product used for unknown indication
     Dosage: AS NEEDED AT LEAST 6 HOURS FOLLOWING THE MORNING DOSE.
     Route: 065

REACTIONS (7)
  - Hypotension [Recovered/Resolved]
  - Nail discolouration [Recovered/Resolved]
  - Nausea [Recovered/Resolved]
  - Heart rate increased [Recovered/Resolved]
  - Somnolence [Recovered/Resolved]
  - Headache [Recovered/Resolved]
  - Peripheral coldness [Recovered/Resolved]
